FAERS Safety Report 6044039-1 (Version None)
Quarter: 2009Q1

REPORT INFORMATION
  Report Type: 
  Country: None (occurrence: None)
  Receive Date: 20090114
  Receipt Date: 20090114
  Transmission Date: 20090719
  Serious: No
  Sender: FDA-Public Use
  Company Number: None

PATIENT
  Age: 4 Year
  Sex: Male
  Weight: 14.5 kg

DRUGS (1)
  1. SINGULAIR [Suspect]
     Indication: ASTHMA
     Dosage: 4 MG QD PO
     Route: 048
     Dates: start: 20050101, end: 20081210

REACTIONS (3)
  - AGGRESSION [None]
  - MIDDLE INSOMNIA [None]
  - SLEEP DISORDER [None]
